FAERS Safety Report 17443741 (Version 1)
Quarter: 2020Q1

REPORT INFORMATION
  Report Type: Spontaneous
  Country: US (occurrence: US)
  Receive Date: 20200220
  Receipt Date: 20200220
  Transmission Date: 20200409
  Serious: Yes (Disabling)
  Sender: FDA-Public Use
  Company Number: None

PATIENT
  Age: 63 Year
  Sex: Male
  Weight: 86.4 kg

DRUGS (5)
  1. FLEXERIL [Concomitant]
     Active Substance: CYCLOBENZAPRINE HYDROCHLORIDE
  2. CELEBREX [Concomitant]
     Active Substance: CELECOXIB
  3. DIAZEPAM. [Concomitant]
     Active Substance: DIAZEPAM
  4. DICLOFENAC SODIUM. [Concomitant]
     Active Substance: DICLOFENAC SODIUM
  5. TIZANIDINE 4 MG HCL TABLETS [Suspect]
     Active Substance: TIZANIDINE
     Indication: MUSCLE SPASMS
     Dosage: ?          QUANTITY:1 TABLET(S);OTHER ROUTE:BY MOUTH?
     Route: 048
     Dates: end: 20200219

REACTIONS (2)
  - Drug ineffective [None]
  - Suspected product quality issue [None]

NARRATIVE: CASE EVENT DATE: 20180630
